FAERS Safety Report 18202516 (Version 2)
Quarter: 2020Q4

REPORT INFORMATION
  Report Type: Spontaneous
  Country: US (occurrence: US)
  Receive Date: 20200827
  Receipt Date: 20201102
  Transmission Date: 20210113
  Serious: No
  Sender: FDA-Public Use
  Company Number: US-BAYER-2020-176680

PATIENT
  Age: 34 Year
  Sex: Female

DRUGS (4)
  1. ASPIRIN (PAIN AND FEVER) [Suspect]
     Active Substance: ASPIRIN
  2. MONTELUKAST [Concomitant]
     Active Substance: MONTELUKAST SODIUM
     Dosage: 10 MG, QD
  3. FEXOFENADINE [Concomitant]
     Active Substance: FEXOFENADINE HYDROCHLORIDE
     Dosage: 360 MG, BID
  4. ZILEUTON. [Concomitant]
     Active Substance: ZILEUTON
     Dosage: 1200 MG, BID

REACTIONS (2)
  - FEV1/FVC ratio decreased [None]
  - Rash macular [None]
